FAERS Safety Report 20594902 (Version 1)
Quarter: 2022Q1

REPORT INFORMATION
  Report Type: Spontaneous
  Country: US (occurrence: None)
  Receive Date: 20220315
  Receipt Date: 20220315
  Transmission Date: 20220423
  Serious: No
  Sender: FDA-Public Use
  Company Number: US-ROCHE-2759449

PATIENT
  Sex: Female
  Weight: 83.082 kg

DRUGS (6)
  1. XOLAIR [Suspect]
     Active Substance: OMALIZUMAB
     Indication: Idiopathic urticaria
     Dosage: INJECT 300 MG SUBCUTANEOUSLY
     Route: 058
     Dates: start: 20181218
  2. ESTRADIOL [Concomitant]
     Active Substance: ESTRADIOL
     Route: 062
     Dates: start: 20181206
  3. HYDROXYCHLOROQUINE [Concomitant]
     Active Substance: HYDROXYCHLOROQUINE
     Route: 048
     Dates: start: 20210126
  4. VITAMINS [Concomitant]
     Active Substance: VITAMINS
     Route: 048
     Dates: start: 20181206
  5. TRILIPIX [Concomitant]
     Active Substance: FENOFIBRIC ACID
     Route: 048
     Dates: start: 20181206
  6. CELEBREX [Concomitant]
     Active Substance: CELECOXIB
     Route: 048
     Dates: start: 20210126

REACTIONS (2)
  - Arthritis [Unknown]
  - COVID-19 [Unknown]
